FAERS Safety Report 5573561-7 (Version None)
Quarter: 2007Q4

REPORT INFORMATION
  Report Type: 
  Country: None (occurrence: None)
  Receive Date: 20071226
  Receipt Date: 20071212
  Transmission Date: 20080405
  Serious: Yes (Other)
  Sender: FDA-Public Use
  Company Number: GB-TEVA-165257ISR

PATIENT
  Sex: Female

DRUGS (2)
  1. METRONIDAZOLE [Suspect]
  2. LETROZOLE [Suspect]
     Indication: BREAST CANCER

REACTIONS (2)
  - LUNG DISORDER [None]
  - PULMONARY FIBROSIS [None]
